FAERS Safety Report 5672683-X (Version None)
Quarter: 2008Q1

REPORT INFORMATION
  Report Type: 
  Country: None (occurrence: None)
  Receive Date: 20080317
  Receipt Date: 20080305
  Transmission Date: 20080703
  Serious: Yes (Life-Threatening, Hospitalization, Other)
  Sender: FDA-Public Use
  Company Number: 024941

PATIENT
  Age: 95 Year
  Sex: Female

DRUGS (3)
  1. AZITHROMYCIN [Suspect]
     Indication: COUGH
  2. AZITHROMYCIN [Suspect]
     Indication: PHARYNGOLARYNGEAL PAIN
  3. AZITHROMYCIN [Suspect]
     Indication: PYREXIA

REACTIONS (5)
  - ACUTE MYOCARDIAL INFARCTION [None]
  - BIFASCICULAR BLOCK [None]
  - CARDIAC ARREST [None]
  - SYNCOPE [None]
  - TORSADE DE POINTES [None]
